FAERS Safety Report 10928008 (Version 1)
Quarter: 2015Q1

REPORT INFORMATION
  Report Type: Spontaneous
  Country: US (occurrence: None)
  Receive Date: 20150317
  Receipt Date: 20150317
  Transmission Date: 20150721
  Serious: Yes (Other)
  Sender: FDA-Public Use
  Company Number: None

PATIENT
  Age: 56 Year
  Sex: Female
  Weight: 83.01 kg

DRUGS (2)
  1. LEVOTHYROXINE 25MCG MYLAN [Suspect]
     Active Substance: LEVOTHYROXINE
     Indication: HYPOTHYROIDISM
     Dosage: 1 PILL QD ORAL
     Route: 048
     Dates: start: 20140617, end: 20150114
  2. OMEPRAZOLE. [Concomitant]
     Active Substance: OMEPRAZOLE

REACTIONS (7)
  - Vertigo [None]
  - Confusional state [None]
  - Thinking abnormal [None]
  - Dizziness [None]
  - Tremor [None]
  - Vision blurred [None]
  - Dyspnoea [None]
